FAERS Safety Report 5221187-7 (Version None)
Quarter: 2007Q1

REPORT INFORMATION
  Report Type: 
  Country: None (occurrence: None)
  Receive Date: 20070126
  Receipt Date: 20070123
  Transmission Date: 20070707
  Serious: Yes (Death, Other)
  Sender: FDA-Public Use
  Company Number: BE-ROXANE LABORATORIES, INC-2007-BP-01044RO

PATIENT
  Age: 4 Year
  Sex: Female

DRUGS (10)
  1. CYCLOPHOSPHAMIDE [Suspect]
     Indication: NEUROBLASTOMA
  2. VINCRISTINE [Suspect]
     Indication: NEUROBLASTOMA
  3. CARBOPLATIN [Suspect]
     Indication: NEUROBLASTOMA
  4. ETOPOSIDE [Suspect]
     Indication: NEUROBLASTOMA
  5. CISPLATIN [Suspect]
     Indication: NEUROBLASTOMA
  6. G-CSF [Suspect]
     Indication: NEUROBLASTOMA
  7. DOXORUBICIN HCL [Suspect]
     Indication: NEUROBLASTOMA
  8. BUSULFAN [Suspect]
     Indication: BONE MARROW FAILURE
  9. MELPHALAN [Suspect]
     Indication: BONE MARROW FAILURE
  10. RETINOIC ACID [Suspect]

REACTIONS (9)
  - BONE PAIN [None]
  - CANDIDIASIS [None]
  - DRUG TOXICITY [None]
  - GENE MUTATION [None]
  - MYELOID LEUKAEMIA [None]
  - NEUROBLASTOMA RECURRENT [None]
  - NODULE ON EXTREMITY [None]
  - PANCYTOPENIA [None]
  - TENDERNESS [None]
